FAERS Safety Report 17724289 (Version 5)
Quarter: 2023Q1

REPORT INFORMATION
  Report Type: Report from Study
  Country: US (occurrence: US)
  Receive Date: 20200429
  Receipt Date: 20230201
  Transmission Date: 20230417
  Serious: No
  Sender: FDA-Public Use
  Company Number: NVSC2020US115661

PATIENT
  Age: 77 Year
  Sex: Male

DRUGS (4)
  1. ENTRESTO [Suspect]
     Active Substance: SACUBITRIL\VALSARTAN
     Indication: Product used for unknown indication
     Dosage: 50 MG, QD (24/26 MG)
     Route: 048
  2. ENTRESTO [Suspect]
     Active Substance: SACUBITRIL\VALSARTAN
     Dosage: 0.5 DF, BID (DECREASED 1/2 TAB AM AND PM)
     Route: 048
     Dates: start: 20200319
  3. ENTRESTO [Suspect]
     Active Substance: SACUBITRIL\VALSARTAN
     Dosage: UNK, OTHER (INCREASED 1/2 TAB AM AND 1 TAB PM)
     Route: 048
  4. FARXIGA [Concomitant]
     Active Substance: DAPAGLIFLOZIN PROPANEDIOL
     Indication: Product used for unknown indication
     Dosage: UNK
     Route: 065

REACTIONS (12)
  - Chest pain [Recovering/Resolving]
  - Feeling abnormal [Unknown]
  - Asthenia [Unknown]
  - Dizziness postural [Unknown]
  - Gait disturbance [Unknown]
  - Dyspnoea [Unknown]
  - Hyperventilation [Unknown]
  - Insomnia [Unknown]
  - Hypotension [Recovering/Resolving]
  - Dizziness [Unknown]
  - Product use issue [Unknown]
  - Wrong technique in product usage process [Unknown]
